FAERS Safety Report 22121539 (Version 1)
Quarter: 2023Q1

REPORT INFORMATION
  Report Type: Spontaneous
  Country: US (occurrence: None)
  Receive Date: 20230321
  Receipt Date: 20230321
  Transmission Date: 20230418
  Serious: Yes (Hospitalization)
  Sender: FDA-Public Use
  Company Number: None

PATIENT
  Age: 73 Year
  Sex: Male
  Weight: 94.5 kg

DRUGS (3)
  1. FLUDARABINE [Suspect]
     Active Substance: FLUDARABINE PHOSPHATE
  2. CYCLOPHOSPHAMIDE [Concomitant]
  3. YASCARTA [Concomitant]

REACTIONS (4)
  - Cytokine release syndrome [None]
  - Serum ferritin increased [None]
  - Neurotoxicity [None]
  - Encephalopathy [None]

NARRATIVE: CASE EVENT DATE: 20221229
